FAERS Safety Report 21172249 (Version 1)
Quarter: 2022Q3

REPORT INFORMATION
  Report Type: Spontaneous
  Country: CA (occurrence: CA)
  Receive Date: 20220804
  Receipt Date: 20220804
  Transmission Date: 20221027
  Serious: Yes (Death, Other)
  Sender: FDA-Public Use
  Company Number: CA-SLATE RUN PHARMACEUTICALS-22CA001242

PATIENT

DRUGS (13)
  1. VANCOMYCIN HYDROCHLORIDE [Suspect]
     Active Substance: VANCOMYCIN HYDROCHLORIDE
     Indication: Tuberculosis
     Dosage: UNK
  2. VORICONAZOLE [Suspect]
     Active Substance: VORICONAZOLE
     Indication: Tuberculosis
     Dosage: UNK
  3. PIPERACILLIN AND TAZOBACTAM [Suspect]
     Active Substance: PIPERACILLIN SODIUM\TAZOBACTAM SODIUM
     Indication: Tuberculosis
     Dosage: UNK
  4. ISONIAZID [Suspect]
     Active Substance: ISONIAZID
     Indication: Tuberculosis
     Dosage: UNK
  5. RIFAMPIN [Suspect]
     Active Substance: RIFAMPIN
     Indication: Tuberculosis
     Dosage: UNK
  6. PYRAZINAMIDE [Suspect]
     Active Substance: PYRAZINAMIDE
     Indication: Tuberculosis
     Dosage: UNK
  7. ETHAMBUTOL [Suspect]
     Active Substance: ETHAMBUTOL HYDROCHLORIDE
     Indication: Tuberculosis
  8. UNSPECIFIED INGREDIENT [Suspect]
     Active Substance: UNSPECIFIED INGREDIENT
     Indication: Tuberculosis
     Dosage: UNK
  9. NOREPINEPHRINE [Suspect]
     Active Substance: NOREPINEPHRINE
     Indication: Tuberculosis
     Dosage: UNK
  10. EPINEPHRINE [Suspect]
     Active Substance: EPINEPHRINE
     Indication: Tuberculosis
     Dosage: UNK
  11. MILRINONE [Suspect]
     Active Substance: MILRINONE
     Indication: Tuberculosis
     Dosage: UNK
  12. NITRIC OXIDE [Suspect]
     Active Substance: NITRIC OXIDE
     Indication: Tuberculosis
     Dosage: UNK
  13. METHYLENE BLUE [Suspect]
     Active Substance: METHYLENE BLUE
     Indication: Tuberculosis
     Dosage: UNK

REACTIONS (3)
  - Septic shock [Fatal]
  - Cardiomyopathy [Not Recovered/Not Resolved]
  - Off label use [Unknown]
